FAERS Safety Report 16044361 (Version 1)
Quarter: 2019Q1

REPORT INFORMATION
  Report Type: Spontaneous
  Country: ES (occurrence: ES)
  Receive Date: 20190306
  Receipt Date: 20190306
  Transmission Date: 20190418
  Serious: Yes (Hospitalization)
  Sender: FDA-Public Use
  Company Number: PHHY2019ES027076

PATIENT
  Age: 86 Year
  Sex: Female

DRUGS (6)
  1. PREDNISONA [Suspect]
     Active Substance: PREDNISONE
     Indication: PAIN
     Dosage: 30 MG, QD
     Route: 065
  2. TRAMADOL+PARACETAMOL [Suspect]
     Active Substance: ACETAMINOPHEN\TRAMADOL
     Indication: SCIATICA
     Dosage: TRAMADOL 37.5/ PARACETAMOL 325 MG EACH 8 H
     Route: 065
  3. METAMIZOLE [Suspect]
     Active Substance: METAMIZOLE
     Indication: SCIATICA
     Dosage: 575 MG, Q8H
     Route: 065
  4. DIAZEPAM. [Suspect]
     Active Substance: DIAZEPAM
     Indication: SCIATICA
     Dosage: 5 MG, QD
     Route: 065
  5. OMEPRAZOL [Concomitant]
     Active Substance: OMEPRAZOLE
     Indication: SCIATICA
     Dosage: 20 MG, QD
     Route: 065
  6. DEXKETOPROFENO [Suspect]
     Active Substance: DEXKETOPROFEN
     Indication: SCIATICA
     Dosage: UNK UNK, Q8H
     Route: 065

REACTIONS (2)
  - Transaminases increased [Recovered/Resolved]
  - Cholestasis [Recovered/Resolved]
